FAERS Safety Report 16758200 (Version 5)
Quarter: 2020Q1

REPORT INFORMATION
  Report Type: Report from Study
  Country: PT (occurrence: PT)
  Receive Date: 20190830
  Receipt Date: 20200131
  Transmission Date: 20200409
  Serious: Yes (Other)
  Sender: FDA-Public Use
  Company Number: PT-BIOGEN-2019BI00764293

PATIENT
  Age: 34 Year
  Sex: Female

DRUGS (2)
  1. PLEGRIDY [Suspect]
     Active Substance: PEGINTERFERON BETA-1A
     Route: 058
     Dates: start: 20190711
  2. PLEGRIDY [Suspect]
     Active Substance: PEGINTERFERON BETA-1A
     Indication: MULTIPLE SCLEROSIS
     Dosage: TITRATION
     Route: 058
     Dates: start: 20190711

REACTIONS (15)
  - Muscular weakness [Not Recovered/Not Resolved]
  - Ketoacidosis [Unknown]
  - Fatigue [Not Recovered/Not Resolved]
  - Injection site erythema [Not Recovered/Not Resolved]
  - Hypoaesthesia [Recovered/Resolved]
  - Mobility decreased [Recovered/Resolved]
  - Liver disorder [Recovered/Resolved]
  - Somnolence [Unknown]
  - Balance disorder [Not Recovered/Not Resolved]
  - Tachycardia [Unknown]
  - Asthenia [Not Recovered/Not Resolved]
  - Injection site rash [Not Recovered/Not Resolved]
  - Visual impairment [Not Recovered/Not Resolved]
  - Multiple sclerosis relapse [Not Recovered/Not Resolved]
  - Pruritus [Not Recovered/Not Resolved]

NARRATIVE: CASE EVENT DATE: 201908
